FAERS Safety Report 11690790 (Version 2)
Quarter: 2015Q4

REPORT INFORMATION
  Report Type: Spontaneous
  Country: US (occurrence: US)
  Receive Date: 20151102
  Receipt Date: 20151229
  Transmission Date: 20160304
  Serious: Yes (Death, Hospitalization)
  Sender: FDA-Public Use
  Company Number: US-JNJFOC-20151023906

PATIENT
  Age: 84 Year
  Sex: Female

DRUGS (15)
  1. CEFTIN [Concomitant]
     Active Substance: CEFUROXIME AXETIL
     Route: 065
  2. VITAMIN D [Concomitant]
     Active Substance: CHOLECALCIFEROL
     Route: 065
  3. PREDNISONE. [Concomitant]
     Active Substance: PREDNISONE
     Route: 065
  4. XARELTO [Suspect]
     Active Substance: RIVAROXABAN
     Indication: PULMONARY EMBOLISM
     Dosage: 15 MG,20 MG
     Route: 048
     Dates: start: 20130808, end: 20140613
  5. MUCINEX [Concomitant]
     Active Substance: GUAIFENESIN
     Route: 065
  6. XANAX [Concomitant]
     Active Substance: ALPRAZOLAM
     Route: 065
  7. XARELTO [Suspect]
     Active Substance: RIVAROXABAN
     Indication: DEEP VEIN THROMBOSIS
     Dosage: 15 MG,20 MG
     Route: 048
     Dates: start: 20130808, end: 20140613
  8. MIRTAZAPINE. [Concomitant]
     Active Substance: MIRTAZAPINE
     Route: 065
     Dates: start: 20060106, end: 20140602
  9. DILTIAZEM [Concomitant]
     Active Substance: DILTIAZEM
     Route: 065
     Dates: start: 20110728, end: 20120910
  10. LEXAPRO [Concomitant]
     Active Substance: ESCITALOPRAM OXALATE
     Route: 065
     Dates: start: 20060310, end: 20120911
  11. SYNTHROID [Concomitant]
     Active Substance: LEVOTHYROXINE SODIUM
     Route: 065
  12. DIOVAN [Concomitant]
     Active Substance: VALSARTAN
     Route: 065
     Dates: start: 20070927, end: 20130925
  13. CALCIUM CARBONATE. [Concomitant]
     Active Substance: CALCIUM CARBONATE
     Route: 065
  14. ALBUTEROL. [Concomitant]
     Active Substance: ALBUTEROL
     Route: 065
     Dates: start: 20060126, end: 20131230
  15. NAMENDA [Concomitant]
     Active Substance: MEMANTINE HYDROCHLORIDE
     Route: 065
     Dates: start: 20060104, end: 20140603

REACTIONS (4)
  - Conjunctival haemorrhage [Unknown]
  - Upper gastrointestinal haemorrhage [Fatal]
  - Chronic obstructive pulmonary disease [Fatal]
  - Haematochezia [Unknown]

NARRATIVE: CASE EVENT DATE: 20131202
